FAERS Safety Report 6216284-3 (Version None)
Quarter: 2009Q2

REPORT INFORMATION
  Report Type: 
  Country: None (occurrence: None)
  Receive Date: 20090603
  Receipt Date: 20090603
  Transmission Date: 20091009
  Serious: No
  Sender: FDA-Public Use
  Company Number: None

PATIENT
  Age: 37 Year
  Sex: Male
  Weight: 64.32 kg

DRUGS (1)
  1. HEPARIN [Suspect]
     Dosage: 1000 UNITS PER HOUR IV
     Route: 042
     Dates: start: 20080926, end: 20081007

REACTIONS (1)
  - THROMBOCYTOPENIA [None]
